FAERS Safety Report 19021603 (Version 2)
Quarter: 2022Q4

REPORT INFORMATION
  Report Type: Spontaneous
  Country: DE (occurrence: DE)
  Receive Date: 20210317
  Receipt Date: 20221031
  Transmission Date: 20230112
  Serious: Yes (Life-Threatening, Hospitalization)
  Sender: FDA-Public Use
  Company Number: DE-ADRED-06200-01

PATIENT
  Age: 83 Year
  Sex: Female
  Weight: 56 kg

DRUGS (6)
  1. RAMIPRIL [Suspect]
     Active Substance: RAMIPRIL
     Indication: Product used for unknown indication
     Dosage: 5 MILLIGRAM DAILY; 1-0-0-0
     Route: 065
  2. ALBUTEROL [Concomitant]
     Active Substance: ALBUTEROL
     Indication: Product used for unknown indication
     Dosage: IF NECESSARY
  3. brimonidin [Concomitant]
     Indication: Product used for unknown indication
     Dosage: 4 MILLIGRAM/MILLILITERS DAILY; 1-0-1-0
  4. Brimonidin/Timolol [Concomitant]
     Indication: Product used for unknown indication
     Dosage: UNIT DOSE: 0.3|5 MG/ML, 0-0-1-0
  5. ANAGRELIDE [Concomitant]
     Active Substance: ANAGRELIDE
     Indication: Product used for unknown indication
     Dosage: 1 MILLIGRAM DAILY; 1-0-0-0
  6. OMEPRAZOLE [Concomitant]
     Active Substance: OMEPRAZOLE
     Indication: Product used for unknown indication
     Dosage: 40 MILLIGRAM DAILY; 1-0-0-0

REACTIONS (9)
  - Dehydration [Unknown]
  - Fall [Unknown]
  - General physical health deterioration [Unknown]
  - Pyrexia [Unknown]
  - Localised infection [Unknown]
  - Vomiting [Unknown]
  - Hyponatraemia [Unknown]
  - Inappropriate antidiuretic hormone secretion [Unknown]
  - Diarrhoea [Unknown]
